FAERS Safety Report 4765512-X (Version None)
Quarter: 2005Q3

REPORT INFORMATION
  Report Type: 
  Country: None (occurrence: None)
  Receive Date: 20050912
  Receipt Date: 20050901
  Transmission Date: 20060218
  Serious: Yes (Other)
  Sender: FDA-Public Use
  Company Number: US-JNJFOC-20050901099

PATIENT
  Age: 77 Year
  Sex: Male

DRUGS (4)
  1. REMICADE [Suspect]
     Dosage: LAST DOSE
     Route: 042
  2. REMICADE [Suspect]
     Indication: RHEUMATOID ARTHRITIS
     Route: 042
  3. NSAIDS [Concomitant]
  4. CARDIAC MEDICATION [Concomitant]

REACTIONS (3)
  - CONDITION AGGRAVATED [None]
  - PROSTATE CANCER [None]
  - RHEUMATOID ARTHRITIS [None]
